FAERS Safety Report 6030226-5 (Version None)
Quarter: 2009Q1

REPORT INFORMATION
  Report Type: 
  Country: None (occurrence: None)
  Receive Date: 20090107
  Receipt Date: 20080825
  Transmission Date: 20090719
  Serious: No
  Sender: FDA-Public Use
  Company Number: US-BAYER-200813546BCC

PATIENT
  Sex: Female
  Weight: 77 kg

DRUGS (4)
  1. ALEVE (CAPLET) [Suspect]
     Indication: ARTHRALGIA
     Route: 048
     Dates: start: 20080801, end: 20080801
  2. ZESTRIL [Concomitant]
  3. CITRICAL [Concomitant]
  4. CENTRUM SILVER VITAMIN [Concomitant]

REACTIONS (1)
  - ARTHRALGIA [None]
